FAERS Safety Report 15577791 (Version 1)
Quarter: 2018Q4

REPORT INFORMATION
  Report Type: Spontaneous
  Country: DE (occurrence: DE)
  Receive Date: 20181102
  Receipt Date: 20181102
  Transmission Date: 20190205
  Serious: Yes (Other)
  Sender: FDA-Public Use
  Company Number: DE-ROCHE-2209173

PATIENT
  Age: 5 Month
  Sex: Female

DRUGS (1)
  1. RITUXIMAB. [Suspect]
     Active Substance: RITUXIMAB
     Indication: ACUTE LYMPHOCYTIC LEUKAEMIA
     Route: 065

REACTIONS (4)
  - Product use in unapproved indication [Unknown]
  - Acute lymphocytic leukaemia recurrent [Recovering/Resolving]
  - Off label use [Unknown]
  - Product use issue [Unknown]
